FAERS Safety Report 15583597 (Version 1)
Quarter: 2018Q4

REPORT INFORMATION
  Report Type: Spontaneous
  Country: US (occurrence: US)
  Receive Date: 20181104
  Receipt Date: 20181104
  Transmission Date: 20190205
  Serious: No
  Sender: FDA-Public Use
  Company Number: US-ELI_LILLY_AND_COMPANY-US201810014565

PATIENT
  Age: 58 Year
  Sex: Female

DRUGS (6)
  1. HUMALOG [Suspect]
     Active Substance: INSULIN LISPRO
     Indication: PRODUCT USED FOR UNKNOWN INDICATION
     Dosage: UNK UNK, UNKNOWN
     Route: 065
  2. METFORMIN [Concomitant]
     Active Substance: METFORMIN HYDROCHLORIDE
     Indication: PRODUCT USED FOR UNKNOWN INDICATION
  3. HUMULIN R [Suspect]
     Active Substance: INSULIN HUMAN
     Indication: PRODUCT USED FOR UNKNOWN INDICATION
     Dosage: 62.77 U, UNKNOWN
     Dates: start: 20181029
  4. HUMULIN R [Suspect]
     Active Substance: INSULIN HUMAN
     Dosage: 32 U, UNKNOWN
     Dates: start: 20181021
  5. HUMULIN R [Suspect]
     Active Substance: INSULIN HUMAN
     Dosage: 78.8 U, UNKNOWN
     Dates: start: 20181028
  6. HUMULIN R [Suspect]
     Active Substance: INSULIN HUMAN
     Dosage: 80.9 U, UNKNOWN
     Dates: start: 20181025

REACTIONS (4)
  - Blood glucose increased [Unknown]
  - Wrong technique in product usage process [Unknown]
  - Insulin resistant diabetes [Unknown]
  - Blood glucose abnormal [Recovering/Resolving]
